FAERS Safety Report 4526412-3 (Version None)
Quarter: 2004Q4

REPORT INFORMATION
  Report Type: 
  Country: None (occurrence: None)
  Receive Date: 20041214
  Receipt Date: 20041202
  Transmission Date: 20050328
  Serious: Yes (Life-Threatening, Hospitalization)
  Sender: FDA-Public Use
  Company Number: US-ROCHE-388275

PATIENT
  Age: 79 Year
  Sex: Male

DRUGS (8)
  1. CAPECITABINE [Suspect]
     Indication: RESPIRATORY DISORDER
     Route: 048
     Dates: start: 20040617, end: 20040906
  2. TEMODAR [Suspect]
     Indication: PROSTATE CANCER
     Route: 048
     Dates: start: 20040617, end: 20040906
  3. THALOMID [Suspect]
     Indication: PROSTATE CANCER
     Route: 048
     Dates: start: 20040617, end: 20040906
  4. METHADONE [Concomitant]
     Indication: PAIN
     Route: 048
  5. DECADRON [Concomitant]
     Route: 048
  6. PEPCID [Concomitant]
     Route: 048
  7. FLOMAX [Concomitant]
  8. ZOFRAN [Concomitant]
     Indication: VOMITING
     Dosage: TAKEN PRN
     Route: 048

REACTIONS (4)
  - COMA [None]
  - CONVULSION [None]
  - RADICULAR PAIN [None]
  - RESPIRATORY DISORDER [None]
